FAERS Safety Report 4763541-3 (Version None)
Quarter: 2005Q3

REPORT INFORMATION
  Report Type: 
  Country: None (occurrence: None)
  Receive Date: 20050826
  Receipt Date: 20050211
  Transmission Date: 20060218
  Serious: Yes (Death, Other)
  Sender: FDA-Public Use
  Company Number: USA-2003-0011158

PATIENT
  Age: 29 Year
  Sex: Male

DRUGS (6)
  1. OXYCONTIN [Suspect]
     Indication: PAIN
  2. ALCOHOL (ETHANOL) [Suspect]
  3. PRILOSEC [Concomitant]
  4. VENLAFAXINE HCL [Concomitant]
  5. VICODIN [Concomitant]
  6. VIOXX [Concomitant]

REACTIONS (4)
  - DRUG DEPENDENCE [None]
  - HALLUCINATION [None]
  - MOOD SWINGS [None]
  - MULTIPLE DRUG OVERDOSE [None]
